FAERS Safety Report 9214296 (Version 1)
Quarter: 2013Q2

REPORT INFORMATION
  Report Type: Report from Study
  Country: CA (occurrence: CA)
  Receive Date: 20130405
  Receipt Date: 20130405
  Transmission Date: 20140414
  Serious: Yes (Other)
  Sender: FDA-Public Use
  Company Number: CA-JNJFOC-20130401123

PATIENT
  Age: 59 Year
  Sex: Male
  Weight: 86.18 kg

DRUGS (4)
  1. REMICADE [Suspect]
     Indication: ANKYLOSING SPONDYLITIS
     Route: 042
     Dates: start: 20130327
  2. REMICADE [Suspect]
     Indication: ANKYLOSING SPONDYLITIS
     Route: 042
     Dates: start: 20100203
  3. COSOPT [Concomitant]
     Dosage: 1 DROP TO RIGHT EYE
     Route: 047
  4. PREDNISONE [Concomitant]
     Indication: IRITIS
     Route: 047

REACTIONS (1)
  - Iritis [Not Recovered/Not Resolved]
